FAERS Safety Report 7333223-2 (Version None)
Quarter: 2011Q1

REPORT INFORMATION
  Report Type: 
  Country: None (occurrence: None)
  Receive Date: 20110304
  Receipt Date: 20110210
  Transmission Date: 20110831
  Serious: Yes (Other)
  Sender: FDA-Public Use
  Company Number: US-SANOFI-AVENTIS-2010SA077161

PATIENT
  Sex: Female

DRUGS (2)
  1. LANTUS [Suspect]
     Route: 058
  2. SOLOSTAR [Suspect]

REACTIONS (2)
  - DEVICE MALFUNCTION [None]
  - PRODUCT QUALITY ISSUE [None]
